FAERS Safety Report 5748693-0 (Version None)
Quarter: 2008Q2

REPORT INFORMATION
  Report Type: 
  Country: None (occurrence: None)
  Receive Date: 20080521
  Receipt Date: 20080502
  Transmission Date: 20081010
  Serious: Yes (Other)
  Sender: FDA-Public Use
  Company Number: CHNY2008GB01477

PATIENT
  Age: 49 Year
  Sex: Female

DRUGS (2)
  1. NICOTINE [Suspect]
     Indication: SMOKING CESSATION THERAPY
     Dosage: 8 0 GUMS OF 2MG / DAY, CHEWED; 10 2 GUMS OF 2MG / DAY, CHEWED
     Dates: start: 20060101
  2. NICOTINE [Concomitant]

REACTIONS (9)
  - ANXIETY [None]
  - DEPRESSED MOOD [None]
  - DEPRESSION [None]
  - INTENTIONAL DRUG MISUSE [None]
  - MULTIPLE DRUG OVERDOSE [None]
  - NICOTINE DEPENDENCE [None]
  - PANIC REACTION [None]
  - TREATMENT NONCOMPLIANCE [None]
  - WITHDRAWAL SYNDROME [None]
